FAERS Safety Report 11636608 (Version 1)
Quarter: 2015Q4

REPORT INFORMATION
  Report Type: Spontaneous
  Country: US (occurrence: None)
  Receive Date: 20151015
  Receipt Date: 20151015
  Transmission Date: 20160304
  Serious: Yes (Other)
  Sender: FDA-Public Use
  Company Number: None

PATIENT
  Age: 56 Year
  Sex: Female

DRUGS (1)
  1. TECFIDERA [Suspect]
     Active Substance: DIMETHYL FUMARATE
     Indication: MULTIPLE SCLEROSIS
     Route: 048
     Dates: start: 20141101, end: 20151014

REACTIONS (5)
  - Muscular weakness [None]
  - Visual impairment [None]
  - Confusional state [None]
  - Mental impairment [None]
  - Memory impairment [None]

NARRATIVE: CASE EVENT DATE: 20151014
